FAERS Safety Report 4424560-X (Version None)
Quarter: 2004Q3

REPORT INFORMATION
  Report Type: 
  Country: None (occurrence: None)
  Receive Date: 20040719
  Receipt Date: 20031120
  Transmission Date: 20050211
  Serious: Yes (Hospitalization)
  Sender: FDA-Public Use
  Company Number: 186752

PATIENT
  Sex: Female
  Weight: 68.9467 kg

DRUGS (1)
  1. AVONEX [Suspect]
     Indication: MULTIPLE SCLEROSIS
     Dosage: 30 MCG QW IM
     Route: 030
     Dates: start: 19960101

REACTIONS (3)
  - FATIGUE [None]
  - FEELING ABNORMAL [None]
  - MULTIPLE SCLEROSIS [None]
